FAERS Safety Report 17041393 (Version 1)
Quarter: 2019Q4

REPORT INFORMATION
  Report Type: Report from Study
  Country: TW (occurrence: TW)
  Receive Date: 20191118
  Receipt Date: 20191118
  Transmission Date: 20200122
  Serious: Yes (Death)
  Sender: FDA-Public Use
  Company Number: TW-ASTRAZENECA-2019SF62182

PATIENT
  Age: 43 Year
  Sex: Female

DRUGS (1)
  1. FASLODEX [Suspect]
     Active Substance: FULVESTRANT
     Indication: BREAST CANCER FEMALE
     Dosage: PI:500 MG AS TWO 5 ML INJECTIONS, ONE IN EACH BUTTOCK, ON DAYS 1, 15, 29 AND ONCE MONTHLY THEREAFTER
     Route: 030
     Dates: start: 20190926

REACTIONS (1)
  - Death [Fatal]
